FAERS Safety Report 7952590-X (Version None)
Quarter: 2011Q4

REPORT INFORMATION
  Report Type: 
  Country: None (occurrence: None)
  Receive Date: 20111201
  Receipt Date: 20101215
  Transmission Date: 20120403
  Serious: Yes (Other)
  Sender: FDA-Public Use
  Company Number: GB-PFIZER INC-2011279167

PATIENT
  Sex: Female

DRUGS (8)
  1. SULFASALAZINE [Suspect]
     Indication: RHEUMATOID ARTHRITIS
  2. METHOTREXATE SODIUM [Suspect]
     Indication: RHEUMATOID ARTHRITIS
     Dosage: UNK
  3. TRAMADOL [Concomitant]
     Indication: PAIN
  4. MORPHINE [Suspect]
     Indication: PAIN
  5. CALCIUM CARBONATE [Concomitant]
  6. HYDROXYCHLOROQUINE [Suspect]
     Indication: RHEUMATOID ARTHRITIS
  7. INFLIXIMAB [Suspect]
     Indication: RHEUMATOID ARTHRITIS
     Dosage: 10 WEEKLY INFUSIONS
     Dates: start: 20040101
  8. FOLIC ACID [Concomitant]

REACTIONS (9)
  - FEELING ABNORMAL [None]
  - PAIN [None]
  - APHAGIA [None]
  - DEPRESSION [None]
  - WEIGHT DECREASED [None]
  - ANGER [None]
  - INFLUENZA LIKE ILLNESS [None]
  - THINKING ABNORMAL [None]
  - RHEUMATOID ARTHRITIS [None]
